FAERS Safety Report 5137038-5 (Version None)
Quarter: 2006Q4

REPORT INFORMATION
  Report Type: 
  Country: None (occurrence: None)
  Receive Date: 20061030
  Receipt Date: 20060728
  Transmission Date: 20070319
  Serious: Yes (Death, Hospitalization, Other)
  Sender: FDA-Public Use
  Company Number: PHBS2006BR11322

PATIENT
  Age: 53 Year
  Sex: Female
  Weight: 60 kg

DRUGS (6)
  1. TEGRETOL [Suspect]
     Dosage: 200 MG, QID
     Route: 048
  2. CAPTOPRIL [Concomitant]
     Indication: HYPERTENSION
     Dosage: UNK, TID
     Route: 048
  3. EUTHYROX [Concomitant]
     Indication: HYPOTHYROIDISM
     Dosage: UNK, QD
     Route: 048
  4. BENERVA [Concomitant]
     Indication: VITAMIN SUPPLEMENTATION
     Route: 065
  5. OLCADIL [Suspect]
     Indication: ANXIETY
     Dosage: 2 MG/D
     Route: 048
  6. GARBAPENTIN [Concomitant]
     Route: 065

REACTIONS (20)
  - ABDOMINAL DISTENSION [None]
  - ACUTE ABDOMEN [None]
  - ANXIETY [None]
  - ASTHENIA [None]
  - CARDIAC ARREST [None]
  - CARDIAC FAILURE CONGESTIVE [None]
  - CARDIO-RESPIRATORY ARREST [None]
  - CARDIOMEGALY [None]
  - CYST [None]
  - CYSTITIS [None]
  - DISORIENTATION [None]
  - MULTI-ORGAN FAILURE [None]
  - NERVOUSNESS [None]
  - OEDEMA PERIPHERAL [None]
  - PULMONARY OEDEMA [None]
  - SEPTIC SHOCK [None]
  - SKIN DISCOLOURATION [None]
  - SURGERY [None]
  - TRIGEMINAL NEURALGIA [None]
  - URINARY BLADDER RUPTURE [None]
